FAERS Safety Report 7568743-9 (Version None)
Quarter: 2011Q2

REPORT INFORMATION
  Report Type: 
  Country: None (occurrence: None)
  Receive Date: 20110623
  Receipt Date: 20110614
  Transmission Date: 20111010
  Serious: Yes (Other)
  Sender: FDA-Public Use
  Company Number: US-JNJFOC-20110608344

PATIENT
  Sex: Female
  Weight: 58.97 kg

DRUGS (1)
  1. ORTHO EVRA [Suspect]
     Indication: CONTRACEPTION
     Route: 062
     Dates: start: 20020101

REACTIONS (4)
  - MULTIPLE ALLERGIES [None]
  - PRODUCT PACKAGING ISSUE [None]
  - ARTHRITIS [None]
  - DRUG DOSE OMISSION [None]
